FAERS Safety Report 11904733 (Version 1)
Quarter: 2016Q1

REPORT INFORMATION
  Report Type: Spontaneous
  Country: US (occurrence: US)
  Receive Date: 20160108
  Receipt Date: 20160108
  Transmission Date: 20160526
  Serious: No
  Sender: FDA-Public Use
  Company Number: US-ROCHE-1647096

PATIENT
  Age: 39 Year
  Sex: Female

DRUGS (5)
  1. OXYGEN. [Concomitant]
     Active Substance: OXYGEN
     Route: 065
  2. SALINE ORAL OTC [Concomitant]
     Active Substance: SODIUM CHLORIDE
     Route: 042
  3. BENADRYL [Concomitant]
     Active Substance: DIPHENHYDRAMINE HYDROCHLORIDE
     Route: 042
  4. RITUXAN [Suspect]
     Active Substance: RITUXIMAB
     Indication: RHEUMATOID ARTHRITIS
     Dosage: 1,000MG ORDERED
     Route: 042
     Dates: start: 20151013, end: 20151014
  5. HYDROCORTISONE. [Concomitant]
     Active Substance: HYDROCORTISONE
     Route: 042

REACTIONS (2)
  - Rash erythematous [Unknown]
  - Pruritus [Unknown]

NARRATIVE: CASE EVENT DATE: 20151013
